FAERS Safety Report 9764379 (Version 1)
Quarter: 2013Q4

REPORT INFORMATION
  Report Type: Spontaneous
  Country: US (occurrence: US)
  Receive Date: 20131217
  Receipt Date: 20131217
  Transmission Date: 20140711
  Serious: Yes (Hospitalization)
  Sender: FDA-Public Use
  Company Number: US-BIOGENIDEC-2013BI120070

PATIENT
  Sex: Female

DRUGS (1)
  1. TYSABRI [Suspect]
     Indication: MULTIPLE SCLEROSIS
     Route: 042
     Dates: start: 20121220

REACTIONS (5)
  - Surgery [Recovered/Resolved]
  - Cellulitis [Recovered/Resolved]
  - Thrombosis [Recovered/Resolved]
  - General symptom [Not Recovered/Not Resolved]
  - Drug ineffective [Not Recovered/Not Resolved]
